FAERS Safety Report 14630936 (Version 3)
Quarter: 2018Q2

REPORT INFORMATION
  Report Type: Spontaneous
  Country: MX (occurrence: MX)
  Receive Date: 20180313
  Receipt Date: 20180410
  Transmission Date: 20180711
  Serious: Yes (Other)
  Sender: FDA-Public Use
  Company Number: MX-009507513-1803MEX004473

PATIENT
  Age: 29 Year
  Sex: Female

DRUGS (2)
  1. IMPLANON [Suspect]
     Active Substance: ETONOGESTREL
     Dosage: 1 IMPLANT (68 MG), UNK
     Route: 059
     Dates: start: 201712
  2. ETONOGESTREL IMPLANT- UNKNOWN [Suspect]
     Active Substance: ETONOGESTREL
     Dosage: 1 IMPLANT (68 MG)
     Route: 059

REACTIONS (7)
  - Typhoid fever [Unknown]
  - Implant site pain [Not Recovered/Not Resolved]
  - Implant site reaction [Not Recovered/Not Resolved]
  - Skin discolouration [Unknown]
  - Limb discomfort [Unknown]
  - Implant site warmth [Not Recovered/Not Resolved]
  - Pyrexia [Recovered/Resolved]

NARRATIVE: CASE EVENT DATE: 2018
